FAERS Safety Report 7434231-3 (Version None)
Quarter: 2011Q2

REPORT INFORMATION
  Report Type: 
  Country: None (occurrence: None)
  Receive Date: 20110425
  Receipt Date: 20110419
  Transmission Date: 20111010
  Serious: No
  Sender: FDA-Public Use
  Company Number: US-PFIZER INC-2011086274

PATIENT
  Sex: Female
  Weight: 59 kg

DRUGS (2)
  1. CELEBREX [Suspect]
     Indication: SCIATICA
     Dosage: 100 MG, 2X/DAY
     Route: 048
     Dates: start: 20110401, end: 20110419
  2. EXCEDRIN (MIGRAINE) [Concomitant]
     Indication: SCIATICA
     Dosage: 1000 MG, 1X/DAY
     Route: 048

REACTIONS (1)
  - DIZZINESS [None]
